FAERS Safety Report 11939497 (Version 1)
Quarter: 2016Q1

REPORT INFORMATION
  Report Type: Spontaneous
  Country: RU (occurrence: RU)
  Receive Date: 20160122
  Receipt Date: 20160122
  Transmission Date: 20160526
  Serious: Yes (Hospitalization, Other)
  Sender: FDA-Public Use
  Company Number: RU-VIIV HEALTHCARE LIMITED-RU2016GSK008016

PATIENT
  Sex: Female

DRUGS (3)
  1. ALUVIA [Suspect]
     Active Substance: LOPINAVIR\RITONAVIR
     Indication: HIV INFECTION
     Dosage: UNK
     Dates: start: 2009
  2. ZIAGEN [Suspect]
     Active Substance: ABACAVIR SULFATE
     Indication: HIV INFECTION
     Dosage: UNK
     Dates: start: 2009
  3. LAMIVUDINE. [Suspect]
     Active Substance: LAMIVUDINE
     Indication: HIV INFECTION
     Dosage: UNK
     Dates: start: 2009

REACTIONS (3)
  - Exposure during pregnancy [Unknown]
  - Haemoglobin decreased [Recovered/Resolved]
  - Abortion threatened [Recovered/Resolved]

NARRATIVE: CASE EVENT DATE: 2015
